FAERS Safety Report 24799792 (Version 1)
Quarter: 2025Q1

REPORT INFORMATION
  Report Type: Spontaneous
  Country: US (occurrence: US)
  Receive Date: 20250102
  Receipt Date: 20250102
  Transmission Date: 20250408
  Serious: No
  Sender: ROCHE
  Company Number: US-ROCHE-10000169716

PATIENT
  Age: 62 Year
  Sex: Female
  Weight: 97.97 kg

DRUGS (1)
  1. AVASTIN [Suspect]
     Active Substance: BEVACIZUMAB
     Indication: Diabetic retinopathy
     Route: 050
     Dates: start: 2014

REACTIONS (10)
  - Eye pain [Recovered/Resolved]
  - Fatigue [Not Recovered/Not Resolved]
  - Pain [Recovering/Resolving]
  - Hypertension [Unknown]
  - Headache [Recovering/Resolving]
  - Limb injury [Not Recovered/Not Resolved]
  - Off label use [Unknown]
  - Eye irritation [Recovering/Resolving]
  - Nausea [Recovering/Resolving]
  - Taste disorder [Recovering/Resolving]

NARRATIVE: CASE EVENT DATE: 20140101
